FAERS Safety Report 5129356-1 (Version None)
Quarter: 2006Q4

REPORT INFORMATION
  Report Type: 
  Country: None (occurrence: None)
  Receive Date: 20061018
  Receipt Date: 20061008
  Transmission Date: 20070319
  Serious: Yes (Disabling)
  Sender: FDA-Public Use
  Company Number: PHBS2006AL15780

PATIENT
  Age: 56 Year
  Sex: Female
  Weight: 85 kg

DRUGS (5)
  1. LESCOL XL [Suspect]
     Indication: DYSLIPIDAEMIA
     Dosage: 80 MG/DAY
     Route: 048
     Dates: start: 20060711
  2. CORVITOL [Concomitant]
  3. ZOLOFT [Concomitant]
  4. XANAX [Concomitant]
  5. OMEPRAZOLE [Concomitant]

REACTIONS (2)
  - ABDOMINAL PAIN UPPER [None]
  - GASTROINTESTINAL DISORDER [None]
